FAERS Safety Report 20952304 (Version 7)
Quarter: 2023Q1

REPORT INFORMATION
  Report Type: Spontaneous
  Country: US (occurrence: US)
  Receive Date: 20220613
  Receipt Date: 20230103
  Transmission Date: 20230418
  Serious: Yes (Life-Threatening, Other)
  Sender: FDA-Public Use
  Company Number: US-PFIZER INC-202200825061

PATIENT
  Age: 77 Year
  Sex: Female

DRUGS (1)
  1. PREMPRO [Suspect]
     Active Substance: ESTROGENS, CONJUGATED\MEDROXYPROGESTERONE ACETATE
     Indication: Menopause
     Dosage: UNK (QUANTITY FOR 90 DAYS: 90 DAYS)

REACTIONS (7)
  - Myocardial infarction [Unknown]
  - Pneumonia [Unknown]
  - Dysphonia [Unknown]
  - COVID-19 [Unknown]
  - Hot flush [Unknown]
  - Breast calcifications [Unknown]
  - Product prescribing error [Unknown]
